FAERS Safety Report 6664155-0 (Version None)
Quarter: 2010Q2

REPORT INFORMATION
  Report Type: 
  Country: None (occurrence: None)
  Receive Date: 20100401
  Receipt Date: 20100326
  Transmission Date: 20101027
  Serious: Yes (Hospitalization)
  Sender: FDA-Public Use
  Company Number: B0644682A

PATIENT
  Age: 62 Year
  Sex: Female

DRUGS (2)
  1. ZINACEF [Suspect]
     Indication: PROPHYLAXIS
     Route: 042
     Dates: start: 20091020
  2. APOTEL [Concomitant]
     Route: 042

REACTIONS (1)
  - ANAPHYLACTIC SHOCK [None]
